FAERS Safety Report 5081048-3 (Version None)
Quarter: 2006Q3

REPORT INFORMATION
  Report Type: 
  Country: None (occurrence: None)
  Receive Date: 20060816
  Receipt Date: 20060718
  Transmission Date: 20061208
  Serious: Yes (Hospitalization)
  Sender: FDA-Public Use
  Company Number: 2006AP03318

PATIENT
  Age: 9683 Day
  Sex: Female

DRUGS (11)
  1. SEROQUEL [Suspect]
     Indication: DISSOCIATIVE DISORDER
     Route: 048
     Dates: start: 20050602, end: 20050617
  2. SEROQUEL [Suspect]
     Route: 048
     Dates: start: 20051208, end: 20060125
  3. SEROQUEL [Suspect]
     Route: 048
     Dates: start: 20060126, end: 20060208
  4. SEROQUEL [Suspect]
     Route: 048
     Dates: start: 20060209, end: 20060419
  5. SEROQUEL [Suspect]
     Route: 048
     Dates: start: 20060518, end: 20060703
  6. MAILAX [Concomitant]
     Route: 048
  7. LORAZEPAM [Concomitant]
     Route: 048
  8. SILECE [Concomitant]
     Route: 048
  9. PURSENNID [Concomitant]
     Indication: CONSTIPATION
     Route: 048
  10. AMOBAN [Concomitant]
     Indication: INSOMNIA
     Route: 048
     Dates: start: 20060420
  11. LENDORMIN [Concomitant]
     Indication: INSOMNIA
     Route: 048

REACTIONS (9)
  - ALANINE AMINOTRANSFERASE INCREASED [None]
  - ARTHROPOD BITE [None]
  - ASPARTATE AMINOTRANSFERASE INCREASED [None]
  - BLISTER [None]
  - BLOOD CREATINE PHOSPHOKINASE INCREASED [None]
  - DRUG ERUPTION [None]
  - MALAISE [None]
  - RHABDOMYOLYSIS [None]
  - WHITE BLOOD CELL COUNT INCREASED [None]
